FAERS Safety Report 25731479 (Version 1)
Quarter: 2025Q3

REPORT INFORMATION
  Report Type: Spontaneous
  Country: CN (occurrence: CN)
  Receive Date: 20250827
  Receipt Date: 20250827
  Transmission Date: 20251020
  Serious: Yes (Other)
  Sender: MERCK SHARP & DOHME LLC
  Company Number: CN-009507513-2323435

PATIENT
  Age: 53 Year
  Sex: Male
  Weight: 75 kg

DRUGS (2)
  1. CILASTATIN SODIUM\IMIPENEM [Suspect]
     Active Substance: CILASTATIN SODIUM\IMIPENEM
     Indication: Infection
     Route: 041
     Dates: start: 20250808, end: 20250809
  2. SODIUM CHLORIDE [Concomitant]
     Active Substance: SODIUM CHLORIDE
     Indication: Infection
     Dosage: 0.9%
     Route: 041
     Dates: start: 20250808, end: 20250809

REACTIONS (3)
  - Epilepsy [Unknown]
  - Overdose [Unknown]
  - Toxic encephalopathy [Unknown]

NARRATIVE: CASE EVENT DATE: 20250808
